FAERS Safety Report 23207705 (Version 1)
Quarter: 2023Q4

REPORT INFORMATION
  Report Type: Spontaneous
  Country: CA (occurrence: CA)
  Receive Date: 20231120
  Receipt Date: 20231120
  Transmission Date: 20240110
  Serious: Yes (Other)
  Sender: FDA-Public Use
  Company Number: CA-AMGEN-CANSP2023204148

PATIENT
  Age: 59 Year

DRUGS (7)
  1. OTEZLA [Suspect]
     Active Substance: APREMILAST
     Indication: Product used for unknown indication
     Dosage: UNK
     Route: 065
  2. SULFASALAZINE [Suspect]
     Active Substance: SULFASALAZINE
     Indication: Product used for unknown indication
     Dosage: 1 DOSAGE FORM
     Route: 065
  3. CIMZIA [Concomitant]
     Active Substance: CERTOLIZUMAB PEGOL
     Dosage: UNK
     Route: 065
  4. HUMIRA [Concomitant]
     Active Substance: ADALIMUMAB
     Dosage: UNK
     Route: 065
  5. RINVOQ [Concomitant]
     Active Substance: UPADACITINIB
     Dosage: UNK
     Route: 065
  6. SKYRIZI [Concomitant]
     Active Substance: RISANKIZUMAB-RZAA
     Dosage: UNK
     Route: 065
  7. STELARA [Concomitant]
     Active Substance: USTEKINUMAB
     Dosage: UNK
     Route: 065

REACTIONS (3)
  - Psoriatic arthropathy [Unknown]
  - Treatment failure [Unknown]
  - Primary biliary cholangitis [Unknown]
